FAERS Safety Report 8396679-2 (Version None)
Quarter: 2012Q1

REPORT INFORMATION
  Report Type: 
  Country: None (occurrence: None)
  Receive Date: 20120323
  Receipt Date: 20110802
  Transmission Date: 20120608
  Serious: Yes (Other)
  Sender: FDA-Public Use
  Company Number: 163-21880-11071283

PATIENT
  Age: 70 Year
  Sex: Male
  Weight: 74.6167 kg

DRUGS (14)
  1. REVLIMID [Suspect]
     Indication: MULTIPLE MYELOMA
     Dosage: 10 MG, 1 IN 1 D, PO, 5 MG, DAILY, PO
     Route: 048
     Dates: start: 20110701
  2. REVLIMID [Suspect]
     Indication: MULTIPLE MYELOMA
     Dosage: 10 MG, 1 IN 1 D, PO, 5 MG, DAILY, PO
     Route: 048
     Dates: start: 20110704, end: 20110707
  3. LORATDINE (LORATADINE) [Concomitant]
  4. TRAMDOL (TRAMADOL) [Concomitant]
  5. MOMETASONE FUROATE [Concomitant]
  6. SIMVASTATIN [Concomitant]
  7. RANITIDINE HYDROCHLORIDE [Concomitant]
  8. DEXAMETHASONE [Concomitant]
  9. FLUNISOLIDE (FLUNISOLIDE) [Concomitant]
  10. FORMOTEROL FUMARATE [Concomitant]
  11. COUGH MEDICINE (GUAIFENESIN) [Concomitant]
  12. OMEPRAZOLE [Concomitant]
  13. ALBUTEROL [Concomitant]
  14. TERAZOSIN HCL [Concomitant]

REACTIONS (6)
  - RASH GENERALISED [None]
  - DIARRHOEA [None]
  - URTICARIA [None]
  - CONSTIPATION [None]
  - PYREXIA [None]
  - PRURITUS [None]
